FAERS Safety Report 5868212-8 (Version None)
Quarter: 2008Q3

REPORT INFORMATION
  Report Type: 
  Country: None (occurrence: None)
  Receive Date: 20080902
  Receipt Date: 20080821
  Transmission Date: 20090109
  Serious: Yes (Other)
  Sender: FDA-Public Use
  Company Number: US-PFIZER INC-2008070238

PATIENT
  Sex: Female
  Weight: 84.09 kg

DRUGS (1)
  1. FLAGYL [Suspect]
     Indication: TRICHOMONIASIS
     Dates: start: 20060722, end: 20060701

REACTIONS (1)
  - ABORTION SPONTANEOUS [None]
